FAERS Safety Report 9249104 (Version 2)
Quarter: 2013Q2

REPORT INFORMATION
  Report Type: Spontaneous
  Country: US (occurrence: US)
  Receive Date: 20130423
  Receipt Date: 20130516
  Transmission Date: 20140414
  Serious: Yes (Death)
  Sender: FDA-Public Use
  Company Number: US-INCYTE CORPORATION-2013IN000758

PATIENT
  Age: 70 Year
  Sex: Male
  Weight: 96.6 kg

DRUGS (11)
  1. JAKAFI [Suspect]
     Indication: MYELOFIBROSIS
     Dosage: 20 MG, BID
     Route: 048
     Dates: start: 20120201, end: 20120427
  2. LASIX [Concomitant]
     Dosage: 40 MG, QD
  3. LIDOCAINE [Concomitant]
     Dosage: 2%
  4. ALUMINUM + MAGNESIUM HYDROXIDE [Concomitant]
     Dosage: 225-200 MG/5ML
  5. DIPHENHYDRAMINE [Concomitant]
     Dosage: 12.5 MG/5ML
  6. DEXILANT [Concomitant]
     Dosage: 60 MG, QD
  7. VICODIN [Concomitant]
     Indication: PAIN
     Dosage: 5-500 MG EVERY 6 HOURS AS NEEDED
  8. ASPIRIN [Concomitant]
     Dosage: 325 MG, QD
  9. MICROZIDE [Concomitant]
     Dosage: 12.5 MG, QD
  10. TENORMIN [Concomitant]
     Dosage: 25 MG, QD
     Route: 048
  11. BACTROBAN [Concomitant]
     Dosage: 2%

REACTIONS (2)
  - Death [Fatal]
  - Tremor [Unknown]
